FAERS Safety Report 17791453 (Version 3)
Quarter: 2020Q2

REPORT INFORMATION
  Report Type: Spontaneous
  Country: US (occurrence: US)
  Receive Date: 20200515
  Receipt Date: 20200624
  Transmission Date: 20200714
  Serious: No
  Sender: FDA-Public Use
  Company Number: US-JNJFOC-20200514730

PATIENT
  Sex: Female

DRUGS (2)
  1. STELARA [Suspect]
     Active Substance: USTEKINUMAB
  2. STELARA [Suspect]
     Active Substance: USTEKINUMAB
     Indication: CROHN^S DISEASE
     Route: 058

REACTIONS (3)
  - Wrong technique in device usage process [Unknown]
  - Device malfunction [Unknown]
  - Underdose [Unknown]

NARRATIVE: CASE EVENT DATE: 2020
